FAERS Safety Report 20533199 (Version 3)
Quarter: 2022Q4

REPORT INFORMATION
  Report Type: Report from Study
  Country: GB (occurrence: GB)
  Receive Date: 20220301
  Receipt Date: 20221123
  Transmission Date: 20230112
  Serious: Yes (Hospitalization, Other)
  Sender: FDA-Public Use
  Company Number: GB-SAMSUNG BIOEPIS-SB-2021-15265

PATIENT
  Age: 54 Year
  Sex: Female

DRUGS (4)
  1. IMRALDI [Suspect]
     Active Substance: ADALIMUMAB
     Indication: Colitis ulcerative
     Dosage: WEEK ZERO?INDUCTION DOSE
     Route: 058
     Dates: start: 20210604
  2. IMRALDI [Suspect]
     Active Substance: ADALIMUMAB
     Dosage: WEEK TWO?INDUCTION DOSE
     Route: 058
  3. IMRALDI [Suspect]
     Active Substance: ADALIMUMAB
     Dosage: WEEK FOUR
     Route: 058
  4. IMRALDI [Suspect]
     Active Substance: ADALIMUMAB
     Route: 058

REACTIONS (30)
  - Meningitis [Recovering/Resolving]
  - Hepatic failure [Recovering/Resolving]
  - Renal failure [Recovering/Resolving]
  - Constipation [Unknown]
  - Headache [Not Recovered/Not Resolved]
  - Fatigue [Unknown]
  - Diarrhoea [Recovered/Resolved]
  - Arthritis [Recovering/Resolving]
  - Rash [Unknown]
  - Seasonal allergy [Unknown]
  - Panic attack [Unknown]
  - Anxiety [Not Recovered/Not Resolved]
  - Abdominal pain [Unknown]
  - Mobility decreased [Unknown]
  - Poor quality sleep [Unknown]
  - Hyperventilation [Unknown]
  - Sleep disorder [Unknown]
  - Illness [Unknown]
  - Depression [Not Recovered/Not Resolved]
  - Weight increased [Unknown]
  - Menopause [Unknown]
  - Psychiatric symptom [Unknown]
  - Injection site rash [Recovered/Resolved]
  - Loss of personal independence in daily activities [Unknown]
  - Carpal tunnel syndrome [Recovering/Resolving]
  - Hot flush [Unknown]
  - Hyperhidrosis [Unknown]
  - Middle insomnia [Unknown]
  - Food intolerance [Unknown]
  - Therapeutic product effect incomplete [Unknown]

NARRATIVE: CASE EVENT DATE: 20210614
